FAERS Safety Report 7988738 (Version 2)
Quarter: 2012Q4

REPORT INFORMATION
  Report Type: 
  Country: CA (occurrence: CA)
  Receive Date: 20110613
  Receipt Date: 20121109
  Transmission Date: 20130627
  Serious: Yes (Hospitalization)
  Sender: FDA-Public Use
  Company Number: PHMT2007CA01260

PATIENT
  Sex: Male

DRUGS (1)
  1. SANDOSTATIN LAR [Suspect]
     Indication: METASTATIC CARCINOID TUMOUR
     Dosage: 40 mg, every 4 weeks
     Route: 030
     Dates: start: 20060615

REACTIONS (4)
  - Asthenia [Unknown]
  - Influenza like illness [Unknown]
  - Gastrointestinal disorder [Unknown]
  - Flatulence [Unknown]
